FAERS Safety Report 14533657 (Version 2)
Quarter: 2018Q1

REPORT INFORMATION
  Report Type: Report from Study
  Country: US (occurrence: US)
  Receive Date: 20180215
  Receipt Date: 20180319
  Transmission Date: 20180509
  Serious: Yes (Other)
  Sender: FDA-Public Use
  Company Number: US-GILEAD-2018-0320536

PATIENT
  Age: 78 Year
  Sex: Female

DRUGS (3)
  1. GAMMA GLOBULIN [Concomitant]
     Active Substance: IMMUNE GLOBULIN NOS
     Indication: IMMUNODEFICIENCY
     Dosage: UNKNOWN
  2. IDELALISIB [Suspect]
     Active Substance: IDELALISIB
     Dosage: 150 MG, BID
     Route: 065
     Dates: start: 20150314, end: 201604
  3. IDELALISIB [Suspect]
     Active Substance: IDELALISIB
     Indication: B-CELL LYMPHOMA
     Dosage: 100 MG, BID
     Route: 048
     Dates: start: 20180130

REACTIONS (8)
  - Recurrent cancer [Not Recovered/Not Resolved]
  - Influenza [Recovering/Resolving]
  - Lymphadenopathy [Recovering/Resolving]
  - Weight decreased [Not Recovered/Not Resolved]
  - Bronchitis [Recovering/Resolving]
  - Fatigue [Not Recovered/Not Resolved]
  - Constipation [Not Recovered/Not Resolved]
  - Diarrhoea [Recovered/Resolved]

NARRATIVE: CASE EVENT DATE: 2015
